FAERS Safety Report 8826597 (Version 1)
Quarter: 2012Q4

REPORT INFORMATION
  Report Type: 
  Country: US (occurrence: US)
  Receive Date: 20121005
  Receipt Date: 20121005
  Transmission Date: 20130627
  Serious: No
  Sender: FDA-Public Use
  Company Number: US-PFIZER INC-2012245154

PATIENT
  Age: 70 Year
  Sex: Female
  Weight: 72.56 kg

DRUGS (3)
  1. LIPITOR [Suspect]
     Indication: BLOOD CHOLESTEROL INCREASED
     Dosage: UNK, QD
     Route: 048
     Dates: start: 2008, end: 2008
  2. HYDROCHLOROTHIAZIDE [Concomitant]
     Indication: HYPERTENSION
     Dosage: 2 DF, daily
     Route: 048
     Dates: start: 1982
  3. METFORMIN [Concomitant]
     Indication: DIABETES MELLITUS
     Dosage: 2 DF, daily
     Route: 048
     Dates: start: 1992

REACTIONS (1)
  - Pain in extremity [Recovered/Resolved]
